FAERS Safety Report 23448784 (Version 1)
Quarter: 2024Q1

REPORT INFORMATION
  Report Type: Report from Study
  Country: NL (occurrence: NL)
  Receive Date: 20240128
  Receipt Date: 20240128
  Transmission Date: 20240409
  Serious: Yes (Hospitalization, Other)
  Sender: FDA-Public Use
  Company Number: NL-ACTELION-A-CH2019-188832

PATIENT
  Age: 77 Year
  Sex: Male
  Weight: 73 kg

DRUGS (38)
  1. OPSUMIT [Suspect]
     Active Substance: MACITENTAN
     Indication: Pulmonary arterial hypertension
     Dosage: 10 MG, QD
     Route: 048
     Dates: start: 20190128
  2. ASPIRIN [Concomitant]
     Active Substance: ASPIRIN
     Dosage: UNK
     Route: 048
     Dates: start: 1999, end: 20181129
  3. SPIRONOLACTONE [Concomitant]
     Active Substance: SPIRONOLACTONE
     Indication: Angina unstable
     Dosage: UNK
     Route: 048
     Dates: start: 20181024
  4. SIMVASTATIN [Concomitant]
     Active Substance: SIMVASTATIN
     Indication: Cardiac disorder
     Dosage: UNK
     Route: 048
     Dates: start: 2006
  5. SIMVASTATIN [Concomitant]
     Active Substance: SIMVASTATIN
     Indication: Angiopathy
  6. PERINDOPRIL [Concomitant]
     Active Substance: PERINDOPRIL
     Indication: Angina unstable
     Dosage: UNK
     Route: 048
     Dates: start: 2012, end: 20190406
  7. PANTOPRAZOLE SODIUM [Concomitant]
     Active Substance: PANTOPRAZOLE SODIUM
     Indication: Prophylaxis
     Dosage: UNK
     Route: 048
     Dates: start: 2006
  8. FUROSEMIDE [Concomitant]
     Active Substance: FUROSEMIDE
     Indication: Hypertension
     Dosage: UNK
     Route: 048
     Dates: start: 20181201
  9. FUROSEMIDE [Concomitant]
     Active Substance: FUROSEMIDE
     Indication: Cardiac failure
     Dosage: UNK
     Route: 042
     Dates: start: 20190823, end: 20190825
  10. CARBASPIRIN CALCIUM [Concomitant]
     Active Substance: CARBASPIRIN CALCIUM
     Indication: Angina unstable
     Dosage: 100 MG, QD
     Route: 048
     Dates: start: 2006
  11. CARBASPIRIN CALCIUM [Concomitant]
     Active Substance: CARBASPIRIN CALCIUM
     Dosage: UNK
     Route: 048
     Dates: start: 20181129
  12. AMLODIPINE [Concomitant]
     Active Substance: AMLODIPINE BESYLATE
     Indication: Angina unstable
     Dosage: 5 MG, QD
     Route: 048
     Dates: start: 2011, end: 20190403
  13. ASCORBIC ACID\POLYETHYLENE GLYCOL 4000\POTASSIUM CL\SOD ASCORBATE\SOD [Concomitant]
     Active Substance: ASCORBIC ACID\POLYETHYLENE GLYCOL 4000\POTASSIUM CL\SOD ASCORBATE\SOD CL\SOD SULFATE
     Indication: Colonoscopy
     Dosage: UNK
     Route: 048
     Dates: start: 20190307, end: 20190309
  14. ASCORBIC ACID\POLYETHYLENE GLYCOL 4000\POTASSIUM CL\SOD ASCORBATE\SOD [Concomitant]
     Active Substance: ASCORBIC ACID\POLYETHYLENE GLYCOL 4000\POTASSIUM CL\SOD ASCORBATE\SOD CL\SOD SULFATE
     Indication: Constipation
  15. OXYGEN [Concomitant]
     Active Substance: OXYGEN
     Indication: Dyspnoea
     Dosage: UNK, PRN
     Route: 050
     Dates: start: 20181207
  16. GENTAMICIN SULFATE [Concomitant]
     Active Substance: GENTAMICIN SULFATE
     Indication: Prophylaxis
     Dosage: UNK
     Dates: start: 20190328, end: 20190328
  17. TEMAZEPAM [Concomitant]
     Active Substance: TEMAZEPAM
     Indication: Insomnia
     Dosage: UNK
     Route: 048
     Dates: start: 20190330, end: 20190403
  18. NATRIUM PHOSPHATE [Concomitant]
     Indication: Constipation
     Dosage: UNK
     Route: 065
     Dates: start: 20190330, end: 20190330
  19. ALBUTEROL [Concomitant]
     Active Substance: ALBUTEROL
     Indication: Bronchospasm
     Dosage: UNK
     Route: 055
     Dates: start: 20190404, end: 20190411
  20. POTASSIUM CHLORIDE [Concomitant]
     Active Substance: POTASSIUM CHLORIDE
     Indication: Prophylaxis
     Dosage: UNK
     Route: 048
     Dates: start: 20190404, end: 20190406
  21. CEFAZOLIN SODIUM [Concomitant]
     Active Substance: CEFAZOLIN SODIUM
     Indication: Prophylaxis
     Dosage: UNK
     Route: 042
     Dates: start: 20190328, end: 20190328
  22. MUPIROCIN [Concomitant]
     Active Substance: MUPIROCIN
     Indication: Prophylaxis
     Dosage: UNK
     Route: 061
     Dates: start: 20190326, end: 20190401
  23. BACTROBAN [Concomitant]
     Active Substance: MUPIROCIN CALCIUM
     Indication: Prophylaxis
     Dosage: UNK
     Route: 061
     Dates: start: 20190210, end: 20190411
  24. NADROPARIN CALCIUM [Concomitant]
     Active Substance: NADROPARIN CALCIUM
     Indication: Anticoagulant therapy
     Dosage: UNK
     Route: 058
     Dates: start: 20190823
  25. MOVICOLON [Concomitant]
     Active Substance: POLYETHYLENE GLYCOL 3350\POTASSIUM CHLORIDE\SODIUM BICARBONATE\SODIUM CHLORIDE
     Indication: Bowel movement irregularity
     Dosage: UNK
     Route: 048
     Dates: start: 20190327, end: 20190406
  26. ONDANSETRON [Concomitant]
     Active Substance: ONDANSETRON
     Indication: Nausea
     Dosage: UNK
     Route: 042
     Dates: start: 20190308, end: 20190309
  27. CALCIUM CHLORIDE [Concomitant]
     Active Substance: CALCIUM CHLORIDE
     Indication: Hypokalaemia
     Dosage: UNK
     Route: 048
     Dates: start: 20190825, end: 20190827
  28. REVATIO [Concomitant]
     Active Substance: SILDENAFIL CITRATE
     Dosage: 20 MG, QD
     Route: 048
     Dates: start: 20190829, end: 20190905
  29. REVATIO [Concomitant]
     Active Substance: SILDENAFIL CITRATE
     Dosage: 40 MG, QD
     Route: 048
     Dates: start: 20190905, end: 20190913
  30. REVATIO [Concomitant]
     Active Substance: SILDENAFIL CITRATE
     Dosage: 60 MG, QD
     Route: 048
     Dates: start: 20190913
  31. NYSTATIN [Concomitant]
     Active Substance: NYSTATIN
     Indication: Candida infection
     Route: 048
     Dates: start: 20220406, end: 20220409
  32. CIPROFLOXACIN HYDROCHLORIDE [Concomitant]
     Active Substance: CIPROFLOXACIN HYDROCHLORIDE
     Indication: Sepsis
     Route: 048
     Dates: start: 20220405, end: 20220409
  33. COMBIVENT [Concomitant]
     Active Substance: ALBUTEROL SULFATE\IPRATROPIUM BROMIDE
     Indication: Oxygen saturation
     Route: 055
     Dates: start: 20220331, end: 20220409
  34. ASPIRIN [Concomitant]
     Active Substance: ASPIRIN
     Indication: Angina pectoris
     Route: 048
     Dates: start: 20191219, end: 20220409
  35. CEFTAZIDIME [Concomitant]
     Active Substance: CEFTAZIDIME
     Indication: Sepsis
     Route: 042
     Dates: start: 20220401, end: 20220405
  36. CEFTRIAXONE [Concomitant]
     Active Substance: CEFTRIAXONE\CEFTRIAXONE SODIUM
     Indication: Sepsis
     Route: 042
     Dates: start: 20220330, end: 20220401
  37. AMOXICILLIN [Concomitant]
     Active Substance: AMOXICILLIN
     Indication: Pyrexia
     Route: 042
     Dates: start: 20220330, end: 20220331
  38. AMOXICILLIN [Concomitant]
     Active Substance: AMOXICILLIN
     Indication: Nitrite urine present

REACTIONS (30)
  - Coronary revascularisation [Recovered/Resolved]
  - Vascular graft [Unknown]
  - Cardiac failure [Recovering/Resolving]
  - Circulatory collapse [Recovering/Resolving]
  - Hypoxia [Recovering/Resolving]
  - Wound [Recovering/Resolving]
  - Pain [Recovered/Resolved]
  - Urinary tract infection [Recovered/Resolved]
  - Renal impairment [Recovered/Resolved]
  - Urinary retention [Recovered/Resolved]
  - Hypokalaemia [Unknown]
  - Pulmonary arterial hypertension [Unknown]
  - Syncope [Recovered/Resolved]
  - Concomitant disease aggravated [Not Recovered/Not Resolved]
  - Catheter management [Unknown]
  - Anaemia [Recovered/Resolved]
  - Haemoglobin decreased [Recovered/Resolved]
  - Colonoscopy [Unknown]
  - Benign prostatic hyperplasia [Unknown]
  - Creatinine renal clearance decreased [Recovered/Resolved]
  - Constipation [Unknown]
  - Insomnia [Unknown]
  - Bronchospasm [Unknown]
  - Tension [Unknown]
  - Blood iron decreased [Recovered/Resolved]
  - Disturbance in attention [Unknown]
  - Memory impairment [Unknown]
  - Fall [Recovered/Resolved]
  - Amnesia [Unknown]
  - Anaemia [Unknown]

NARRATIVE: CASE EVENT DATE: 20190328
